FAERS Safety Report 7263371-7 (Version None)
Quarter: 2011Q1

REPORT INFORMATION
  Report Type: 
  Country: None (occurrence: None)
  Receive Date: 20110130
  Receipt Date: 20101104
  Transmission Date: 20110831
  Serious: Yes (Hospitalization, Other)
  Sender: FDA-Public Use
  Company Number: US-ABBOTT-10P-163-0683770-00

PATIENT
  Sex: Male

DRUGS (4)
  1. HUMIRA [Suspect]
     Indication: CROHN'S DISEASE
     Route: 058
     Dates: start: 20100901, end: 20101028
  2. PREDNISONE [Concomitant]
     Indication: PRODUCT USED FOR UNKNOWN INDICATION
     Dosage: TAPERED DOWN TO 10 MG/DAY
  3. UNKNOWN IRON SUPPLEMENT [Concomitant]
     Indication: ANAEMIA
  4. HUMIRA [Suspect]
     Route: 058
     Dates: start: 20101103

REACTIONS (2)
  - GASTROINTESTINAL HAEMORRHAGE [None]
  - CROHN'S DISEASE [None]
